FAERS Safety Report 24998753 (Version 1)
Quarter: 2025Q1

REPORT INFORMATION
  Report Type: Spontaneous
  Country: US (occurrence: US)
  Receive Date: 20250222
  Receipt Date: 20250222
  Transmission Date: 20250408
  Serious: No
  Sender: SANOFI AVENTIS
  Company Number: US-SA-2025SA043904

PATIENT
  Sex: Female

DRUGS (1)
  1. DUPIXENT [Suspect]
     Active Substance: DUPILUMAB
     Route: 058
     Dates: start: 20250124

REACTIONS (22)
  - Headache [Unknown]
  - Insomnia [Unknown]
  - Skin irritation [Unknown]
  - Swelling face [Unknown]
  - Fatigue [Unknown]
  - Diarrhoea [Unknown]
  - Heart rate increased [Unknown]
  - Confusional state [Unknown]
  - Memory impairment [Unknown]
  - Dizziness [Unknown]
  - Lymphadenopathy [Unknown]
  - Abdominal discomfort [Unknown]
  - Muscle spasms [Unknown]
  - Nausea [Unknown]
  - Skin fissures [Unknown]
  - Chills [Unknown]
  - Vision blurred [Unknown]
  - Sputum discoloured [Unknown]
  - Glossodynia [Unknown]
  - Myalgia [Unknown]
  - Injection site rash [Unknown]
  - Arthralgia [Unknown]

NARRATIVE: CASE EVENT DATE: 20250101
